FAERS Safety Report 5227155-3 (Version None)
Quarter: 2007Q1

REPORT INFORMATION
  Report Type: 
  Country: None (occurrence: None)
  Receive Date: 20070201
  Receipt Date: 20070201
  Transmission Date: 20070707
  Serious: Yes (Hospitalization)
  Sender: FDA-Public Use
  Company Number: None

PATIENT
  Age: 57 Year
  Sex: Male
  Weight: 80 kg

DRUGS (3)
  1. ATENOLOL [Suspect]
     Indication: BLOOD PRESSURE
     Dosage: TAKE ONE TABLET EVERY DAY PO
     Route: 048
     Dates: start: 20001003, end: 20070112
  2. ATENOLOL [Suspect]
     Indication: CARDIAC DISORDER
     Dosage: TAKE ONE TABLET EVERY DAY PO
     Route: 048
     Dates: start: 20001003, end: 20070112
  3. TERAZOSIN HCL [Suspect]
     Indication: BENIGN PROSTATIC HYPERPLASIA
     Dosage: TAKE ONE CAPSULE AT BEDTIME PO
     Route: 048
     Dates: start: 20000411, end: 20070112

REACTIONS (3)
  - ALCOHOL USE [None]
  - BLOOD PRESSURE ORTHOSTATIC ABNORMAL [None]
  - DEHYDRATION [None]
